FAERS Safety Report 14507777 (Version 1)
Quarter: 2018Q1

REPORT INFORMATION
  Report Type: Spontaneous
  Country: US (occurrence: US)
  Receive Date: 20180208
  Receipt Date: 20180208
  Transmission Date: 20180509
  Serious: No
  Sender: FDA-Public Use
  Company Number: US-PURDUE-USA-2018-0142588

PATIENT
  Age: 85 Year
  Sex: Female

DRUGS (6)
  1. BUTRANS [Suspect]
     Active Substance: BUPRENORPHINE
     Indication: ARTHROPATHY
  2. BUTRANS [Suspect]
     Active Substance: BUPRENORPHINE
     Indication: SCOLIOSIS
  3. BUTRANS [Suspect]
     Active Substance: BUPRENORPHINE
     Indication: CERVICAL VERTEBRAL FRACTURE
     Dosage: 10 MCG/HR, WEEKLY
     Route: 062
     Dates: start: 20180130
  4. BUTRANS [Suspect]
     Active Substance: BUPRENORPHINE
     Indication: SPINAL COLUMN STENOSIS
  5. BUTRANS [Suspect]
     Active Substance: BUPRENORPHINE
     Indication: OSTEOPOROSIS
  6. BUTRANS [Suspect]
     Active Substance: BUPRENORPHINE
     Indication: ROTATOR CUFF SYNDROME

REACTIONS (1)
  - Muscle spasms [Not Recovered/Not Resolved]

NARRATIVE: CASE EVENT DATE: 20180130
